FAERS Safety Report 17801125 (Version 1)
Quarter: 2020Q2

REPORT INFORMATION
  Report Type: Other
  Country: FR (occurrence: FR)
  Receive Date: 20200519
  Receipt Date: 20200519
  Transmission Date: 20200714
  Serious: Yes (Hospitalization)
  Sender: FDA-Public Use
  Company Number: FR-ASPEN-GLO2020FR005001

PATIENT
  Age: 49 Year
  Sex: Male
  Weight: 95 kg

DRUGS (1)
  1. ORGARAN [Suspect]
     Active Substance: DANAPAROID SODIUM
     Indication: EMBOLISM VENOUS
     Dosage: UNK
     Route: 041

REACTIONS (3)
  - Epistaxis [Recovered/Resolved with Sequelae]
  - Mouth haemorrhage [Recovered/Resolved with Sequelae]
  - Haematoma muscle [Not Recovered/Not Resolved]

NARRATIVE: CASE EVENT DATE: 20200401
